FAERS Safety Report 14731419 (Version 2)
Quarter: 2018Q2

REPORT INFORMATION
  Report Type: Other
  Country: BE (occurrence: BE)
  Receive Date: 20180407
  Receipt Date: 20180504
  Transmission Date: 20180711
  Serious: Yes (Hospitalization, Other)
  Sender: FDA-Public Use
  Company Number: BE-MACLEODS PHARMACEUTICALS US LTD-MAC2018012207

PATIENT

DRUGS (1)
  1. OLMESARTAN TABLET [Suspect]
     Active Substance: OLMESARTAN
     Indication: HYPERTENSION
     Dosage: UNK
     Route: 048

REACTIONS (6)
  - Electrolyte imbalance [Unknown]
  - Malabsorption [Recovered/Resolved]
  - Metabolic acidosis [Unknown]
  - Coeliac disease [Recovered/Resolved]
  - Acute kidney injury [Recovered/Resolved]
  - Diarrhoea [Recovered/Resolved]
